FAERS Safety Report 7190408-6 (Version None)
Quarter: 2010Q4

REPORT INFORMATION
  Report Type: 
  Country: None (occurrence: None)
  Receive Date: 20101223
  Receipt Date: 20101217
  Transmission Date: 20110411
  Serious: Yes (Life-Threatening, Hospitalization)
  Sender: FDA-Public Use
  Company Number: FR-PURDUE-GBR-2010-0007523

PATIENT
  Sex: Male

DRUGS (16)
  1. MORPHINE SULFATE CR TABLET [Suspect]
     Indication: PAIN
     Dosage: 60 MG, DAILY
     Route: 048
     Dates: start: 20091027, end: 20091115
  2. SEVREDOL TABLETS [Suspect]
     Indication: BACK PAIN
     Dosage: 30 MG, DAILY
     Dates: start: 20091027, end: 20091115
  3. SEVREDOL TABLETS [Suspect]
     Dosage: 60 MG, DAILY
     Route: 048
     Dates: start: 20091027, end: 20091115
  4. KARDEGIC [Concomitant]
     Dosage: 75 MG, DAILY
     Route: 048
  5. SEROPLEX [Concomitant]
     Dosage: 10 MG, DAILY
     Route: 048
  6. SERETIDE [Concomitant]
     Dosage: 500 MG, BID
  7. RAMIPRIL [Concomitant]
     Dosage: 1.25 MG, DAILY
  8. VASTAREL [Concomitant]
     Dosage: 35 MG, UNK
  9. INEXIUM                            /01479302/ [Concomitant]
     Dosage: 40 MG, DAILY
  10. PREVISCAN                          /00261401/ [Concomitant]
     Dosage: 1.25 MG, DAILY
  11. ZOLPIDEM [Concomitant]
     Dosage: 10 MG, UNK
  12. CARDENSIEL [Concomitant]
     Dosage: 2.5 MG, DAILY
  13. FUROSEMID                          /00032601/ [Concomitant]
     Dosage: 40 MG, DAILY
  14. TAMSULOSINE HCL A [Concomitant]
     Dosage: 0.4 MG, UNK
  15. PERMIXON                           /00833501/ [Concomitant]
     Dosage: 160 UNK, UNK
  16. DOLIPRANE [Concomitant]

REACTIONS (14)
  - ABDOMINAL REBOUND TENDERNESS [None]
  - BRADYPNOEA [None]
  - COMA [None]
  - CONFUSIONAL STATE [None]
  - CYANOSIS [None]
  - DEPRESSED LEVEL OF CONSCIOUSNESS [None]
  - HYPERCAPNIA [None]
  - HYPERHIDROSIS [None]
  - HYPOVOLAEMIA [None]
  - OVERDOSE [None]
  - OXYGEN SATURATION DECREASED [None]
  - RENAL FAILURE [None]
  - RESPIRATORY ACIDOSIS [None]
  - URINARY RETENTION [None]
